FAERS Safety Report 13568527 (Version 1)
Quarter: 2017Q2

REPORT INFORMATION
  Report Type: Spontaneous
  Country: US (occurrence: US)
  Receive Date: 20170522
  Receipt Date: 20170522
  Transmission Date: 20170830
  Serious: Yes (Hospitalization)
  Sender: FDA-Public Use
  Company Number: None

PATIENT
  Age: 39 Year
  Sex: Female
  Weight: 59.86 kg

DRUGS (1)
  1. APIXABAN BRISTOL MYERS SQUIBB/PFIZER [Suspect]
     Active Substance: APIXABAN
     Indication: EMBOLISM VENOUS
     Route: 048
     Dates: start: 20170301

REACTIONS (7)
  - Asthenia [None]
  - Feeling abnormal [None]
  - Failure to thrive [None]
  - Decreased appetite [None]
  - Fatigue [None]
  - Headache [None]
  - Somnolence [None]

NARRATIVE: CASE EVENT DATE: 20170518
